FAERS Safety Report 6046912-7 (Version None)
Quarter: 2009Q1

REPORT INFORMATION
  Report Type: 
  Country: None (occurrence: None)
  Receive Date: 20090122
  Receipt Date: 20090113
  Transmission Date: 20090719
  Serious: Yes (Other)
  Sender: FDA-Public Use
  Company Number: BR-ABBOTT-08P-020-0483629-00

PATIENT
  Sex: Female
  Weight: 54 kg

DRUGS (5)
  1. HUMIRA [Suspect]
     Indication: RHEUMATOID ARTHRITIS
     Route: 058
     Dates: start: 20080717
  2. OMEPRAZOLE [Concomitant]
     Indication: DRUG USE FOR UNKNOWN INDICATION
  3. IMOSEC [Concomitant]
     Indication: DRUG USE FOR UNKNOWN INDICATION
  4. VELAXIN [Concomitant]
     Indication: DRUG USE FOR UNKNOWN INDICATION
  5. MAGNESIUM CHLORIDE [Concomitant]
     Indication: CONSTIPATION

REACTIONS (2)
  - DIARRHOEA [None]
  - LARGE INTESTINE PERFORATION [None]
